FAERS Safety Report 7273364-1 (Version None)
Quarter: 2011Q1

REPORT INFORMATION
  Report Type: 
  Country: None (occurrence: None)
  Receive Date: 20110203
  Receipt Date: 20101001
  Transmission Date: 20110831
  Serious: No
  Sender: FDA-Public Use
  Company Number: US-ABBOTT-10P-163-0676543-00

PATIENT
  Age: 68 Year
  Sex: Female
  Weight: 50.848 kg

DRUGS (1)
  1. SYNTHROID [Suspect]
     Indication: HYPOTHYROIDISM
     Dosage: FREQUENCY 1.5
     Dates: start: 20100701

REACTIONS (4)
  - WEIGHT INCREASED [None]
  - BREAST PAIN [None]
  - ABDOMINAL DISCOMFORT [None]
  - ABDOMINAL PAIN UPPER [None]
